FAERS Safety Report 7363300-1 (Version None)
Quarter: 2011Q1

REPORT INFORMATION
  Report Type: 
  Country: None (occurrence: None)
  Receive Date: 20110321
  Receipt Date: 20110308
  Transmission Date: 20110831
  Serious: Yes (Hospitalization)
  Sender: FDA-Public Use
  Company Number: US-JNJFOC-20080202719

PATIENT
  Sex: Female
  Weight: 65.6 kg

DRUGS (12)
  1. PREDNISONE [Concomitant]
  2. INFLIXIMAB [Suspect]
     Route: 042
  3. AZATHIOPRINE [Concomitant]
  4. PREDNISONE [Concomitant]
  5. INFLIXIMAB [Suspect]
     Indication: CROHN'S DISEASE
     Dosage: 4TH DOSE
     Route: 042
  6. INFLIXIMAB [Suspect]
     Dosage: 3RD DOSE
     Route: 042
  7. PREDNISONE [Concomitant]
  8. PREDNISONE [Concomitant]
  9. MESALAMINE [Concomitant]
  10. HUMIRA [Concomitant]
  11. INFLIXIMAB [Suspect]
     Dosage: 2ND DOSE
     Route: 042
  12. ANTIBIOTIC [Concomitant]

REACTIONS (3)
  - CROHN'S DISEASE [None]
  - WOUND INFECTION [None]
  - INTESTINAL OBSTRUCTION [None]
